FAERS Safety Report 9282488 (Version 2)
Quarter: 2013Q2

REPORT INFORMATION
  Report Type: Spontaneous
  Country: US (occurrence: US)
  Receive Date: 20130510
  Receipt Date: 20130520
  Transmission Date: 20140414
  Serious: Yes (Other)
  Sender: FDA-Public Use
  Company Number: US-ACCORD-017585

PATIENT
  Age: 73 Year
  Sex: Male

DRUGS (2)
  1. PACLITAXEL [Suspect]
     Indication: ADENOID CYSTIC CARCINOMA
  2. CARBOPLATIN [Suspect]
     Indication: ADENOID CYSTIC CARCINOMA
     Dosage: AUC OF 1.5
     Route: 040

REACTIONS (4)
  - Dysphagia [Recovered/Resolved]
  - Dermatitis exfoliative [Recovered/Resolved]
  - Mucosal inflammation [Recovered/Resolved]
  - Off label use [Unknown]
